FAERS Safety Report 4650808-2 (Version None)
Quarter: 2005Q2

REPORT INFORMATION
  Report Type: 
  Country: None (occurrence: None)
  Receive Date: 20050503
  Receipt Date: 20050422
  Transmission Date: 20051028
  Serious: Yes (Other)
  Sender: FDA-Public Use
  Company Number: 2004-10868

PATIENT
  Age: 42 Year
  Sex: Male

DRUGS (2)
  1. QUILONORM RETARD [Suspect]
     Indication: AGORAPHOBIA
     Dosage: 450MG TWICE PER DAY
     Route: 048
     Dates: end: 20041222
  2. EFFEXOR [Concomitant]
     Indication: AGORAPHOBIA
     Dosage: 112.5MG TWICE PER DAY
     Route: 048
     Dates: start: 20041223

REACTIONS (4)
  - BLOOD CREATININE INCREASED [None]
  - HAEMOGLOBIN INCREASED [None]
  - NEPHROGENIC DIABETES INSIPIDUS [None]
  - URINE SODIUM DECREASED [None]
